FAERS Safety Report 5164314-2 (Version None)
Quarter: 2006Q4

REPORT INFORMATION
  Report Type: 
  Country: None (occurrence: None)
  Receive Date: 20061127
  Receipt Date: 20061127
  Transmission Date: 20070319
  Serious: Yes (Life-Threatening, Hospitalization, Other)
  Sender: FDA-Public Use
  Company Number: None

PATIENT
  Age: 31 Year
  Sex: Female

DRUGS (3)
  1. HALDOL [Suspect]
     Indication: BIPOLAR DISORDER
     Dosage: 5MG ONCE/DAY PO
     Route: 048
     Dates: start: 20061007, end: 20061119
  2. SEROQUEL [Suspect]
     Indication: BIPOLAR DISORDER
     Dosage: 100-600MG ONCE/DAY PO
     Route: 048
     Dates: start: 20061007, end: 20061119
  3. LAMICTAL [Concomitant]

REACTIONS (6)
  - APGAR SCORE LOW [None]
  - CAESAREAN SECTION [None]
  - DRUG EXPOSURE DURING PREGNANCY [None]
  - ECLAMPSIA [None]
  - PREMATURE BABY [None]
  - PREMATURE SEPARATION OF PLACENTA [None]
